FAERS Safety Report 18370258 (Version 2)
Quarter: 2021Q4

REPORT INFORMATION
  Report Type: Spontaneous
  Country: CN (occurrence: CN)
  Receive Date: 20201012
  Receipt Date: 20211004
  Transmission Date: 20220303
  Serious: Yes (Hospitalization, Other)
  Sender: FDA-Public Use
  Company Number: CN-MLMSERVICE-20200924-2496605-1

PATIENT
  Age: 21 Year
  Sex: Female

DRUGS (10)
  1. TRAMADOL HYDROCHLORIDE [Suspect]
     Active Substance: TRAMADOL HYDROCHLORIDE
     Indication: Arthralgia
     Dosage: 100 MILLIGRAM, UNK
     Route: 042
  2. DEZOCINE [Suspect]
     Active Substance: DEZOCINE
     Indication: Anaesthesia
     Dosage: 2 MILLIGRAM, SINGLE (1 TOTAL)
     Route: 065
  3. PROPOFOL [Suspect]
     Active Substance: PROPOFOL
     Indication: Maintenance of anaesthesia
     Dosage: 10 MILLIGRAM PER MILLILITRE (CONTINUOUS INFUSION)
     Route: 042
  4. CISATRACURIUM [Suspect]
     Active Substance: CISATRACURIUM
     Indication: Anaesthesia
     Dosage: 6 MILLIGRAM, SINGLE (1 TOTAL)
     Route: 065
  5. REMIFENTANIL [Suspect]
     Active Substance: REMIFENTANIL
     Indication: Maintenance of anaesthesia
     Dosage: 0.02 MILLIGRAM PER MILLILITRE (CONTINUOUS INFUSION)
     Route: 042
  6. MIDAZOLAM [Suspect]
     Active Substance: MIDAZOLAM
     Indication: Anaesthesia
     Dosage: 1 MILLIGRAM, SINGLE (1 TOTAL)
     Route: 065
  7. ETOMIDATE [Suspect]
     Active Substance: ETOMIDATE
     Indication: Anaesthesia
     Dosage: 20 MILLIGRAM, SINGLE (1 TOTAL)
     Route: 065
  8. SUFENTANIL [Suspect]
     Active Substance: SUFENTANIL
     Indication: Anaesthesia
     Dosage: 0.01 MILLIGRAM, SINGLE (1 TOTAL)
     Route: 065
  9. PARECOXIB [Concomitant]
     Active Substance: PARECOXIB
     Indication: Product used for unknown indication
     Dosage: 40 MILLIGRAM, UNK
     Route: 065
  10. ONDANSETRON [Concomitant]
     Active Substance: ONDANSETRON
     Indication: Product used for unknown indication
     Dosage: 8 MILLIGRAM, UNK
     Route: 065

REACTIONS (6)
  - Hypertension [Recovered/Resolved]
  - Metabolic acidosis [Recovered/Resolved]
  - Respiratory alkalosis [Recovered/Resolved]
  - Tachypnoea [Recovered/Resolved]
  - Dyspnoea [Recovered/Resolved]
  - Headache [Recovered/Resolved]
